FAERS Safety Report 6043000-0 (Version None)
Quarter: 2009Q1

REPORT INFORMATION
  Report Type: 
  Country: None (occurrence: None)
  Receive Date: 20090119
  Receipt Date: 20080926
  Transmission Date: 20090719
  Serious: No
  Sender: FDA-Public Use
  Company Number: US-BAYER-200834646NA

PATIENT
  Age: 47 Year
  Sex: Male
  Weight: 106 kg

DRUGS (4)
  1. MAGNEVIST [Suspect]
     Indication: NUCLEAR MAGNETIC RESONANCE IMAGING BRAIN
     Dosage: TOTAL DAILY DOSE: 20 ML
     Route: 042
     Dates: start: 20080926, end: 20080926
  2. VIAGRA [Concomitant]
  3. LITHIUM [Concomitant]
  4. ANDRODERM [Concomitant]

REACTIONS (2)
  - PRURITUS [None]
  - URTICARIA [None]
